FAERS Safety Report 10347250 (Version 1)
Quarter: 2014Q3

REPORT INFORMATION
  Report Type: Spontaneous
  Country: US (occurrence: US)
  Receive Date: 20140729
  Receipt Date: 20140729
  Transmission Date: 20150326
  Serious: No
  Sender: FDA-Public Use
  Company Number: US-BAYER-2014-100949

PATIENT
  Age: 14 Year
  Sex: Male

DRUGS (1)
  1. FINACEA [Suspect]
     Active Substance: AZELAIC ACID
     Route: 061

REACTIONS (2)
  - Seborrhoea [None]
  - Erythema [None]

NARRATIVE: CASE EVENT DATE: 20140701
